FAERS Safety Report 6756969-3 (Version None)
Quarter: 2010Q2

REPORT INFORMATION
  Report Type: 
  Country: None (occurrence: None)
  Receive Date: 20100603
  Receipt Date: 20100603
  Transmission Date: 20101027
  Serious: Yes (Other)
  Sender: FDA-Public Use
  Company Number: None

PATIENT
  Age: 56 Year
  Sex: Female
  Weight: 64.8644 kg

DRUGS (1)
  1. PRAVACHOL [Suspect]
     Indication: BLOOD CHOLESTEROL INCREASED
     Dosage: ONE TABLET DAILY PO
     Route: 048
     Dates: start: 19870401, end: 19890401

REACTIONS (9)
  - ARRHYTHMIA [None]
  - CORONARY ARTERY OCCLUSION [None]
  - DRUG TOXICITY [None]
  - DYSPNOEA EXERTIONAL [None]
  - EMPHYSEMA [None]
  - HYPERSOMNIA [None]
  - NERVE INJURY [None]
  - PULMONARY FIBROSIS [None]
  - SCAR [None]
